FAERS Safety Report 16894176 (Version 3)
Quarter: 2020Q1

REPORT INFORMATION
  Report Type: Report from Study
  Country: US (occurrence: US)
  Receive Date: 20191008
  Receipt Date: 20200109
  Transmission Date: 20200409
  Serious: Yes (Other)
  Sender: FDA-Public Use
  Company Number: US-PFIZER INC-2019162182

PATIENT
  Age: 54 Year
  Sex: Female

DRUGS (3)
  1. XELJANZ XR [Suspect]
     Active Substance: TOFACITINIB CITRATE
     Dosage: 11 MG, DAILY
     Route: 048
     Dates: start: 20190928, end: 201910
  2. XELJANZ XR [Suspect]
     Active Substance: TOFACITINIB CITRATE
     Dosage: 11 MG, DAILY
     Route: 048
     Dates: start: 20191104
  3. XELJANZ XR [Suspect]
     Active Substance: TOFACITINIB CITRATE
     Indication: RHEUMATOID ARTHRITIS
     Dosage: 11 MG, DAILY
     Route: 048
     Dates: start: 201901, end: 2019

REACTIONS (10)
  - Therapeutic product effect incomplete [Unknown]
  - Gait disturbance [Recovering/Resolving]
  - Nasopharyngitis [Unknown]
  - Fatigue [Unknown]
  - Vertigo [Not Recovered/Not Resolved]
  - Influenza [Unknown]
  - Deafness unilateral [Not Recovered/Not Resolved]
  - Vomiting [Unknown]
  - Tinnitus [Not Recovered/Not Resolved]
  - Nausea [Unknown]

NARRATIVE: CASE EVENT DATE: 2019
